FAERS Safety Report 10343768 (Version 1)
Quarter: 2014Q3

REPORT INFORMATION
  Report Type: Spontaneous
  Country: JP (occurrence: JP)
  Receive Date: 20140725
  Receipt Date: 20140725
  Transmission Date: 20150326
  Serious: Yes (Other)
  Sender: FDA-Public Use
  Company Number: JP-B.I. PHARMACEUTICALS,INC./RIDGEFIELD-2014-BI-34011NB

PATIENT
  Age: 58 Year
  Sex: Male

DRUGS (1)
  1. MIRAPEX [Suspect]
     Active Substance: PRAMIPEXOLE DIHYDROCHLORIDE
     Indication: PRODUCT USED FOR UNKNOWN INDICATION
     Route: 048

REACTIONS (8)
  - Delusion [Unknown]
  - Agitation [Unknown]
  - Neuroleptic malignant syndrome [Unknown]
  - Confusional state [Unknown]
  - Delirium [Unknown]
  - Hallucination [Unknown]
  - Inappropriate antidiuretic hormone secretion [Unknown]
  - Sudden onset of sleep [Unknown]
